FAERS Safety Report 23458137 (Version 2)
Quarter: 2024Q2

REPORT INFORMATION
  Report Type: Spontaneous
  Country: US (occurrence: US)
  Receive Date: 20240130
  Receipt Date: 20240516
  Transmission Date: 20240716
  Serious: No
  Sender: FDA-Public Use
  Company Number: US-PFIZER INC-202400027636

PATIENT
  Age: 82 Year
  Sex: Female

DRUGS (11)
  1. XELJANZ XR [Suspect]
     Active Substance: TOFACITINIB CITRATE
     Dosage: 22 MG
  2. TRELEGY ELLIPTA [Concomitant]
     Active Substance: FLUTICASONE FUROATE\UMECLIDINIUM BROMIDE\VILANTEROL TRIFENATATE
  3. GABAPENTIN [Concomitant]
     Active Substance: GABAPENTIN
  4. LOSARTAN [Concomitant]
     Active Substance: LOSARTAN
  5. BACLOFEN [Concomitant]
     Active Substance: BACLOFEN
  6. NEXIUM [Concomitant]
     Active Substance: ESOMEPRAZOLE MAGNESIUM
  7. DULOXETINE [Concomitant]
     Active Substance: DULOXETINE
  8. TRAMADOL [Concomitant]
     Active Substance: TRAMADOL\TRAMADOL HYDROCHLORIDE
  9. PROLIA [Concomitant]
     Active Substance: DENOSUMAB
  10. ACETYLCYSTEINE [Concomitant]
     Active Substance: ACETYLCYSTEINE
  11. ALIGN [Concomitant]
     Active Substance: BIFIDOBACTERIUM LONGUM SUBSP. INFANTIS

REACTIONS (1)
  - Herpes zoster [Not Recovered/Not Resolved]

NARRATIVE: CASE EVENT DATE: 20231101
